FAERS Safety Report 5971460-X (Version None)
Quarter: 2008Q4

REPORT INFORMATION
  Report Type: 
  Country: None (occurrence: None)
  Receive Date: 20081201
  Receipt Date: 20081124
  Transmission Date: 20090506
  Serious: Yes (Hospitalization)
  Sender: FDA-Public Use
  Company Number: BE-BRISTOL-MYERS SQUIBB COMPANY-14418206

PATIENT
  Age: 52 Year
  Sex: Female

DRUGS (7)
  1. TRAZODONE HCL [Suspect]
     Dosage: COTHERAPY WITH VENFLAXINE AND MONOTHERAPY FROM SEP-2005
  2. FLUOXETINE [Suspect]
     Dates: start: 19980601, end: 20011201
  3. PAROXETINE HCL [Suspect]
     Dates: start: 20011201, end: 20020801
  4. SERTRALINE [Suspect]
     Dosage: ABANDONED FROM JUN-2005 ON
     Dates: start: 20020801
  5. VENLAFAXINE HCL [Suspect]
  6. RISPERIDONE [Suspect]
     Dosage: ABANDONED FROM SEP-2005 ON
     Dates: end: 20050601
  7. LORAZEPAM [Suspect]
     Dosage: AT BED TIME

REACTIONS (4)
  - BLOOD PROLACTIN INCREASED [None]
  - JOINT SWELLING [None]
  - OSTEOPOROSIS [None]
  - RIB FRACTURE [None]
